FAERS Safety Report 5225982-X (Version None)
Quarter: 2007Q1

REPORT INFORMATION
  Report Type: 
  Country: None (occurrence: None)
  Receive Date: 20070129
  Receipt Date: 20070115
  Transmission Date: 20070707
  Serious: Yes (Other)
  Sender: FDA-Public Use
  Company Number: 2007-153130-NL

PATIENT
  Age: 26 Year
  Sex: Female
  Weight: 70.3 kg

DRUGS (3)
  1. NUVARING [Suspect]
     Indication: CONTRACEPTION
     Dosage: VAGINAL, 3 WEEKS IN 1 WEEK OUT
     Route: 067
     Dates: start: 20061210
  2. ADVIR [Concomitant]
  3. ZYRTEC [Concomitant]

REACTIONS (3)
  - BACK PAIN [None]
  - CHEST PAIN [None]
  - HYPOAESTHESIA [None]
